FAERS Safety Report 6034080-7 (Version None)
Quarter: 2009Q1

REPORT INFORMATION
  Report Type: 
  Country: None (occurrence: None)
  Receive Date: 20090108
  Receipt Date: 20090106
  Transmission Date: 20090719
  Serious: Yes (Hospitalization, Disabling)
  Sender: FDA-Public Use
  Company Number: 1000003070

PATIENT
  Age: 26 Year
  Sex: Female

DRUGS (3)
  1. LEXAPRO [Suspect]
     Indication: DEPRESSION
     Dosage: 5 MG (5 MG, 1 IN 1 D), ORAL
     Route: 048
     Dates: start: 20040923, end: 20041004
  2. LEXAPRO [Suspect]
     Indication: DEPRESSION
     Dosage: 10 MG (10 MG, 1 IN 1 D), ORAL
     Route: 048
     Dates: start: 20041005, end: 20040101
  3. FLEXERIL [Concomitant]

REACTIONS (7)
  - AMNESIA [None]
  - ARTIFICIAL MENOPAUSE [None]
  - GRAND MAL CONVULSION [None]
  - HAND FRACTURE [None]
  - PREMATURE MENOPAUSE [None]
  - SPINAL FRACTURE [None]
  - TREMOR [None]
